FAERS Safety Report 8387105-8 (Version None)
Quarter: 2012Q2

REPORT INFORMATION
  Report Type: 
  Country: None (occurrence: None)
  Receive Date: 20120525
  Receipt Date: 20120517
  Transmission Date: 20120825
  Serious: Yes (Hospitalization)
  Sender: FDA-Public Use
  Company Number: US-ACTELION-A-US2012-59773

PATIENT

DRUGS (2)
  1. ADCIRCA [Concomitant]
  2. EPOPROSTENOL SODIUM [Suspect]
     Indication: PULMONARY ARTERIAL HYPERTENSION
     Dosage: 17 NG/KG, PER MIN
     Route: 042
     Dates: start: 20111229

REACTIONS (7)
  - GASTROINTESTINAL HAEMORRHAGE [None]
  - NAUSEA [None]
  - GASTROINTESTINAL DISORDER [None]
  - PAIN IN EXTREMITY [None]
  - VOMITING [None]
  - DIARRHOEA [None]
  - MALAISE [None]
